FAERS Safety Report 13546079 (Version 1)
Quarter: 2017Q2

REPORT INFORMATION
  Report Type: Spontaneous
  Country: US (occurrence: US)
  Receive Date: 20170514
  Receipt Date: 20170514
  Transmission Date: 20170830
  Serious: Yes (Other)
  Sender: FDA-Public Use
  Company Number: None

PATIENT
  Age: 54 Year
  Sex: Female
  Weight: 92.7 kg

DRUGS (1)
  1. CRESTOR [Suspect]
     Active Substance: ROSUVASTATIN CALCIUM
     Indication: HYPERLIPIDAEMIA
     Route: 048
     Dates: start: 20161109, end: 20170512

REACTIONS (7)
  - Ankle fracture [None]
  - Type 2 diabetes mellitus [None]
  - Gait disturbance [None]
  - Joint instability [None]
  - Neuropathy peripheral [None]
  - Neuralgia [None]
  - Muscular weakness [None]

NARRATIVE: CASE EVENT DATE: 20170509
